FAERS Safety Report 8445101-6 (Version None)
Quarter: 2012Q2

REPORT INFORMATION
  Report Type: 
  Country: None (occurrence: None)
  Receive Date: 20120618
  Receipt Date: 20120613
  Transmission Date: 20120825
  Serious: No
  Sender: FDA-Public Use
  Company Number: US-PFIZER INC-2012142761

PATIENT
  Sex: Female

DRUGS (2)
  1. TICLID [Interacting]
     Indication: ANTICOAGULANT THERAPY
     Dosage: UNK
     Dates: end: 20120601
  2. PRISTIQ [Suspect]
     Dosage: 50 MG, UNK
     Route: 048

REACTIONS (2)
  - ACTIVATED PARTIAL THROMBOPLASTIN TIME ABNORMAL [None]
  - DRUG INTERACTION [None]
